FAERS Safety Report 11807426 (Version 1)
Quarter: 2015Q4

REPORT INFORMATION
  Report Type: Spontaneous
  Country: NL (occurrence: NL)
  Receive Date: 20151207
  Receipt Date: 20151207
  Transmission Date: 20160305
  Serious: Yes (Hospitalization)
  Sender: FDA-Public Use
  Company Number: NL-PFIZER INC-2015420910

PATIENT
  Age: 82 Year
  Sex: Male

DRUGS (1)
  1. CLINDAMYCIN HCL [Suspect]
     Active Substance: CLINDAMYCIN HYDROCHLORIDE
     Indication: STREPTOCOCCAL INFECTION
     Dosage: 600 MG, 3X/DAY
     Route: 048
     Dates: start: 20151001

REACTIONS (2)
  - Pharyngeal oedema [Recovering/Resolving]
  - Laryngeal ulceration [Recovering/Resolving]

NARRATIVE: CASE EVENT DATE: 20151119
